FAERS Safety Report 14122079 (Version 2)
Quarter: 2017Q4

REPORT INFORMATION
  Report Type: Report from Study
  Country: None (occurrence: NL)
  Receive Date: 20171024
  Receipt Date: 20171116
  Transmission Date: 20180321
  Serious: Yes (Hospitalization, Other)
  Sender: FDA-Public Use
  Company Number: NL-ABBVIE-17P-114-2136500-00

PATIENT
  Age: 38 Year
  Sex: Female
  Weight: 95 kg

DRUGS (5)
  1. TAMOXIFEN [Concomitant]
     Active Substance: TAMOXIFEN
     Indication: BREAST CANCER
     Route: 048
     Dates: start: 201512
  2. LUPRON DEPOT [Suspect]
     Active Substance: LEUPROLIDE ACETATE
     Indication: BREAST CANCER
     Route: 065
     Dates: start: 20160316
  3. PREGABALINE [Concomitant]
     Active Substance: PREGABALIN
     Indication: NEURALGIA
     Route: 048
     Dates: start: 201509
  4. LUPRON DEPOT [Suspect]
     Active Substance: LEUPROLIDE ACETATE
     Indication: BREAST CANCER
     Route: 065
     Dates: start: 20151223, end: 20160217
  5. CLONIDINE. [Concomitant]
     Active Substance: CLONIDINE
     Indication: ADVERSE EVENT
     Route: 048
     Dates: start: 201509

REACTIONS (2)
  - Breast reconstruction [Unknown]
  - Cancer gene carrier [Recovered/Resolved]

NARRATIVE: CASE EVENT DATE: 20170606
